FAERS Safety Report 20795796 (Version 1)
Quarter: 2022Q2

REPORT INFORMATION
  Report Type: Spontaneous
  Country: US (occurrence: US)
  Receive Date: 20220506
  Receipt Date: 20220506
  Transmission Date: 20220721
  Serious: No
  Sender: FDA-Public Use
  Company Number: US-PFIZER INC-202200035141

PATIENT
  Age: 70 Year
  Sex: Female
  Weight: 58.97 kg

DRUGS (3)
  1. ESTRING [Suspect]
     Active Substance: ESTRADIOL
     Indication: Uterine prolapse
     Dosage: 2 MG (2MG PER UNIT, ONE TIME FOR 90 DAYS)
  2. ESTRING [Suspect]
     Active Substance: ESTRADIOL
     Dosage: 2 MG
  3. LISINOPRIL [Concomitant]
     Active Substance: LISINOPRIL
     Dosage: UNK

REACTIONS (6)
  - Drug ineffective for unapproved indication [Unknown]
  - Off label use [Unknown]
  - Medical device discomfort [Unknown]
  - Dysmenorrhoea [Unknown]
  - Influenza like illness [Unknown]
  - Device issue [Unknown]
